FAERS Safety Report 8637796 (Version 2)
Quarter: 2013Q4

REPORT INFORMATION
  Report Type: Spontaneous
  Country: US (occurrence: US)
  Receive Date: 20120627
  Receipt Date: 20131028
  Transmission Date: 20140711
  Serious: No
  Sender: FDA-Public Use
  Company Number: US-JNJFOC-20120606976

PATIENT
  Age: 37 Year
  Sex: Male

DRUGS (1)
  1. INVEGA SUSTENNA [Suspect]
     Indication: PRODUCT USED FOR UNKNOWN INDICATION
     Route: 030

REACTIONS (5)
  - Underdose [Unknown]
  - Exposure via direct contact [Unknown]
  - Device malfunction [Unknown]
  - Device leakage [Unknown]
  - Needle issue [Unknown]
